FAERS Safety Report 6891290-4 (Version None)
Quarter: 2010Q3

REPORT INFORMATION
  Report Type: 
  Country: None (occurrence: None)
  Receive Date: 20100731
  Receipt Date: 20090720
  Transmission Date: 20110219
  Serious: No
  Sender: FDA-Public Use
  Company Number: US-PFIZER INC-2009230879

PATIENT
  Sex: Male
  Weight: 74 kg

DRUGS (4)
  1. LIPITOR [Suspect]
     Indication: ARTHRALGIA
     Dosage: 40 MG, 1X/DAY, DAILY, EVERYDAY
     Route: 048
     Dates: start: 20040101, end: 20090501
  2. PROTONIX [Concomitant]
     Dosage: UNK
  3. TRIAMCINOLONE ACETONIDE [Concomitant]
     Dosage: UNK
  4. ATENOLOL [Concomitant]
     Dosage: UNK

REACTIONS (3)
  - ARTHRALGIA [None]
  - CHEST PAIN [None]
  - MYALGIA [None]
